FAERS Safety Report 14781514 (Version 1)
Quarter: 2018Q2

REPORT INFORMATION
  Report Type: Spontaneous
  Country: FR (occurrence: FR)
  Receive Date: 20180419
  Receipt Date: 20180419
  Transmission Date: 20180711
  Serious: Yes (Other)
  Sender: FDA-Public Use
  Company Number: FR-MERCK KGAA-2046102

PATIENT
  Age: 48 Year
  Sex: Female

DRUGS (1)
  1. NOVOTHYROX [Suspect]
     Active Substance: LEVOTHYROXINE SODIUM
     Indication: AUTOIMMUNE THYROIDITIS
     Dates: start: 201707

REACTIONS (34)
  - Visual impairment [None]
  - Personal relationship issue [None]
  - Blood thyroid stimulating hormone increased [None]
  - Blood cholesterol increased [None]
  - Anxiety [Not Recovered/Not Resolved]
  - Conversion disorder [None]
  - Total cholesterol/HDL ratio increased [None]
  - Serum ferritin increased [None]
  - Palpitations [None]
  - Muscle spasms [Recovered/Resolved]
  - Suicidal ideation [Recovered/Resolved]
  - Chest discomfort [None]
  - Arthralgia [Recovering/Resolving]
  - Hypothyroidism [None]
  - Fatigue [None]
  - Sleep disorder [None]
  - Musculoskeletal pain [Recovering/Resolving]
  - Headache [None]
  - Amenorrhoea [Not Recovered/Not Resolved]
  - Insomnia [None]
  - Dysphagia [None]
  - Disturbance in attention [Recovering/Resolving]
  - Irritability [None]
  - Asthenia [None]
  - Pain in extremity [Recovering/Resolving]
  - Pain [Recovering/Resolving]
  - Memory impairment [Recovering/Resolving]
  - Oral discomfort [None]
  - Impaired work ability [None]
  - Coating in mouth [None]
  - Neuralgia [None]
  - Loss of libido [None]
  - Apathy [None]
  - Decreased interest [None]

NARRATIVE: CASE EVENT DATE: 201707
